FAERS Safety Report 25066982 (Version 2)
Quarter: 2025Q1

REPORT INFORMATION
  Report Type: Spontaneous
  Country: AE (occurrence: AE)
  Receive Date: 20250312
  Receipt Date: 20250324
  Transmission Date: 20250408
  Serious: Yes (Death)
  Sender: NOVARTIS
  Company Number: AE-002147023-NVSC2025AE041069

PATIENT
  Age: 65 Year
  Sex: Female
  Weight: 49.3 kg

DRUGS (1)
  1. ENTRESTO [Suspect]
     Active Substance: SACUBITRIL\VALSARTAN
     Indication: Product used for unknown indication
     Dosage: 1 DOSAGE FORM, BID
     Route: 048
     Dates: start: 20240905, end: 20241005

REACTIONS (3)
  - Ischaemic stroke [Fatal]
  - Cardiac arrest [Fatal]
  - Cerebrovascular accident [Fatal]

NARRATIVE: CASE EVENT DATE: 20250208
